FAERS Safety Report 6663373-5 (Version None)
Quarter: 2010Q1

REPORT INFORMATION
  Report Type: 
  Country: None (occurrence: None)
  Receive Date: 20100330
  Receipt Date: 20100330
  Transmission Date: 20100710
  Serious: Yes (Disabling, Other)
  Sender: FDA-Public Use
  Company Number: None

PATIENT
  Age: 57 Year
  Sex: Female
  Weight: 80.2867 kg

DRUGS (1)
  1. CRESTOR [Suspect]
     Indication: BLOOD CHOLESTEROL INCREASED
     Dosage: 10 MG ONE PER DAY PO
     Route: 048
     Dates: start: 20090301, end: 20090324

REACTIONS (9)
  - AMNESIA [None]
  - ARTHRALGIA [None]
  - FATIGUE [None]
  - HYPERSENSITIVITY [None]
  - MUSCULOSKELETAL STIFFNESS [None]
  - MYALGIA [None]
  - NASOPHARYNGITIS [None]
  - PAIN [None]
  - SINUS DISORDER [None]
